FAERS Safety Report 17514688 (Version 1)
Quarter: 2020Q1

REPORT INFORMATION
  Report Type: Spontaneous
  Country: US (occurrence: US)
  Receive Date: 20200309
  Receipt Date: 20200309
  Transmission Date: 20200409
  Serious: Yes (Hospitalization, Other)
  Sender: FDA-Public Use
  Company Number: US-ALVOGEN-2020-ALVOGEN-107756

PATIENT
  Age: 58 Year
  Sex: Male

DRUGS (1)
  1. FENTANYL. [Suspect]
     Active Substance: FENTANYL
     Indication: PRODUCT USED FOR UNKNOWN INDICATION
     Dosage: ORAL INGESTION OF FENTANYL PATCHES
     Route: 048

REACTIONS (9)
  - Hypertension [Unknown]
  - Overdose [Unknown]
  - Metabolic acidosis [Unknown]
  - Acute kidney injury [Unknown]
  - Depressed level of consciousness [Unknown]
  - Incorrect route of product administration [Unknown]
  - Tachycardia [Unknown]
  - Respiratory depression [Recovering/Resolving]
  - Transaminases increased [Unknown]
